FAERS Safety Report 11868782 (Version 2)
Quarter: 2015Q4

REPORT INFORMATION
  Report Type: Spontaneous
  Country: NL (occurrence: NL)
  Receive Date: 20151225
  Receipt Date: 20151229
  Transmission Date: 20160305
  Serious: Yes (Hospitalization, Other)
  Sender: FDA-Public Use
  Company Number: NL-ROCHE-1681751

PATIENT
  Age: 72 Year
  Sex: Male

DRUGS (20)
  1. XOLAIR [Suspect]
     Active Substance: OMALIZUMAB
     Indication: PRODUCT USED FOR UNKNOWN INDICATION
     Route: 065
     Dates: start: 20151106, end: 20151204
  2. HYDROCHLOROTHIAZIDE. [Concomitant]
     Active Substance: HYDROCHLOROTHIAZIDE
  3. SIRDALUD [Concomitant]
     Active Substance: TIZANIDINE
     Route: 065
  4. CYRESS [Concomitant]
     Active Substance: BARNIDIPINE HYDROCHLORIDE
     Route: 065
  5. EMSELEX [Concomitant]
     Active Substance: DARIFENACIN HYDROBROMIDE
     Route: 065
  6. RUPAFIN [Concomitant]
     Active Substance: RUPATADINE FUMARATE
     Route: 065
  7. LEVOMENTHOL [Concomitant]
     Active Substance: LEVOMENTHOL
     Route: 065
  8. PRAMIPEXOLE. [Concomitant]
     Active Substance: PRAMIPEXOLE
     Route: 065
  9. DUSPATAL [Concomitant]
     Active Substance: MEBEVERINE
     Route: 065
  10. ACETYLSALICYLIC ACID [Concomitant]
     Active Substance: ASPIRIN
     Route: 065
  11. EMCOR [Concomitant]
     Active Substance: BISOPROLOL
     Route: 065
  12. MAGNESIUM HYDROXIDE. [Concomitant]
     Active Substance: MAGNESIUM HYDROXIDE
     Route: 065
  13. PANTOZOL (NETHERLANDS) [Concomitant]
     Route: 065
  14. NITROGLYCERIN. [Concomitant]
     Active Substance: NITROGLYCERIN
     Route: 065
  15. PERINDOPRIL [Concomitant]
     Active Substance: PERINDOPRIL
     Route: 065
  16. NOVORAPID [Concomitant]
     Active Substance: INSULIN ASPART
     Route: 065
  17. ISOSORBIDE MONONITRATE. [Concomitant]
     Active Substance: ISOSORBIDE MONONITRATE
     Route: 065
  18. CLOPIDOGREL [Concomitant]
     Active Substance: CLOPIDOGREL BISULFATE
     Route: 065
  19. SIMVASTATINE [Concomitant]
     Active Substance: SIMVASTATIN
     Route: 065
  20. INSULIN [Concomitant]
     Active Substance: INSULIN NOS

REACTIONS (6)
  - Dyspnoea [Unknown]
  - Tongue disorder [Unknown]
  - Cardiac disorder [Unknown]
  - Dysphagia [Unknown]
  - Pain [Recovering/Resolving]
  - Chest pain [Recovering/Resolving]

NARRATIVE: CASE EVENT DATE: 20151106
